FAERS Safety Report 7082481-0 (Version None)
Quarter: 2010Q3

REPORT INFORMATION
  Report Type: 
  Country: None (occurrence: None)
  Receive Date: 20100929
  Receipt Date: 20100617
  Transmission Date: 20110219
  Serious: No
  Sender: FDA-Public Use
  Company Number: US-WYE-H15772910

PATIENT
  Age: 54 Year
  Sex: Female
  Weight: 61.29 kg

DRUGS (4)
  1. PRISTIQ [Suspect]
     Indication: DEPRESSION
     Dosage: 50 MG 1X PER 1 DAY
     Dates: start: 20100318, end: 20100610
  2. PLAVIX [Concomitant]
  3. LISINOPRIL [Concomitant]
  4. GEMFIBROZIL [Concomitant]

REACTIONS (10)
  - DISORIENTATION [None]
  - DIZZINESS [None]
  - DRUG WITHDRAWAL SYNDROME [None]
  - GAIT DISTURBANCE [None]
  - HYPERHIDROSIS [None]
  - MENTAL IMPAIRMENT [None]
  - NAUSEA [None]
  - UNEVALUABLE EVENT [None]
  - WEIGHT [None]
  - WEIGHT INCREASED [None]
